FAERS Safety Report 16055456 (Version 4)
Quarter: 2019Q2

REPORT INFORMATION
  Report Type: Report from Study
  Country: IL (occurrence: IL)
  Receive Date: 20190311
  Receipt Date: 20190531
  Transmission Date: 20190711
  Serious: Yes (Hospitalization)
  Sender: FDA-Public Use
  Company Number: IL-IPSEN BIOPHARMACEUTICALS, INC.-2019-02212

PATIENT
  Sex: Female
  Weight: 77 kg

DRUGS (33)
  1. RIBONE [Concomitant]
     Active Substance: RISEDRONATE SODIUM
  2. LEVOTHYROXINE SODIUM. [Concomitant]
     Active Substance: LEVOTHYROXINE SODIUM
     Dosage: 50 MICROGRAMS X ONCE A DAY IN THE MORNING
  3. OLODATEROL HCL [Concomitant]
     Dosage: 1 ONCE A DAY IN MORNING FOR 30 DAYS
  4. EMPAGLIFLOZIN [Concomitant]
     Active Substance: EMPAGLIFLOZIN
     Dosage: 25 MG X ONCE A DAY IN THE MORNING FOR 30 DAYS
  5. OMEPRADEX [Concomitant]
     Active Substance: OMEPRAZOLE
  6. LEVOTHYROXINE SODIUM. [Concomitant]
     Active Substance: LEVOTHYROXINE SODIUM
     Dosage: 150 MICROGRAMS X ONCE A DAY IN THE MORNING
  7. BECLOMETASONE DIPROPIONATE [Concomitant]
     Active Substance: BECLOMETHASONE DIPROPIONATE
     Dosage: 1 ACT 2 TIMES A DAY
  8. MAALOX ANTACID [Concomitant]
     Active Substance: ALUMINUM HYDROXIDE\DIMETHICONE\MAGNESIUM HYDROXIDE
  9. DISOTHIAZIDE [Concomitant]
     Active Substance: HYDROCHLOROTHIAZIDE
  10. OMEPRAZOLE. [Concomitant]
     Active Substance: OMEPRAZOLE
  11. LEVOTHYROXINE SODIUM. [Concomitant]
     Active Substance: LEVOTHYROXINE SODIUM
     Dosage: 50 MICROGRAMS X ONCE A DAY IN THE MORNING FOR 30 DAYS
  12. CLOPIDOGREL HYDROGEN SULPHATE [Concomitant]
     Active Substance: CLOPIDOGREL BISULFATE
     Dosage: 75 MG X ONCE A DAY IN THE MORNING
  13. EMPAGLIFLOZIN [Concomitant]
     Active Substance: EMPAGLIFLOZIN
     Dosage: 25 MG X ONCE A DAY IN THE MORNING
  14. SOMATULINE AUTOGEL 120MG [Suspect]
     Active Substance: LANREOTIDE ACETATE
     Indication: NEUROENDOCRINE TUMOUR
     Dosage: 120 MG
     Dates: start: 20090211
  15. ENALADEX [Concomitant]
     Active Substance: ENALAPRIL MALEATE
  16. VITAMIN D [Concomitant]
     Active Substance: VITAMIN D NOS
  17. IPRATROPIUM BROMIDE. [Concomitant]
     Active Substance: IPRATROPIUM BROMIDE
     Dosage: 0.25 MG X ONCE A DAY IN THE MORNING FOR 30 DAYS
  18. CLOPIDOGREL HYDROGEN SULPHATE [Concomitant]
     Active Substance: CLOPIDOGREL BISULFATE
     Dosage: 75 MG X ONCE A DAY IN THE MORNING FOR 30 DAYS
  19. ENALAPRIL [Concomitant]
     Active Substance: ENALAPRIL
     Dosage: 10 MG X ONCE A DAY IN THE MORNING
  20. ENALAPRIL [Concomitant]
     Active Substance: ENALAPRIL
     Dosage: 10 MG X ONCE A DAY IN THE MORNING FOR 30 DAYS
  21. DIPYRONE [Concomitant]
     Active Substance: DIPYRONE
  22. OMEPRAZOLE. [Concomitant]
     Active Substance: OMEPRAZOLE
     Dosage: 20 MG X ONCE A DAY IN THE MORNING FOR 30 DAYS
  23. IPRATROPIUM BROMIDE. [Concomitant]
     Active Substance: IPRATROPIUM BROMIDE
     Dosage: 0.25 MG X ONCE A DAY IN THE MORNING.
  24. CARBOCYSTEINE [Concomitant]
     Active Substance: CARBOCYSTEINE
  25. ELTROXIN [Concomitant]
     Active Substance: LEVOTHYROXINE
  26. MAGNESIUM HYDROXIDE. [Concomitant]
     Active Substance: MAGNESIUM HYDROXIDE
  27. LEVOTHYROXINE SODIUM. [Concomitant]
     Active Substance: LEVOTHYROXINE SODIUM
     Dosage: 150 MICROGRAMS X ONCE A DAY IN THE MORNING FOR 30 DAYS
  28. HYDROCHLOROTHIAZIDE. [Concomitant]
     Active Substance: HYDROCHLOROTHIAZIDE
     Dosage: 25 MG X ONCE A DAY IN THE MORNING
  29. HYDROCHLOROTHIAZIDE. [Concomitant]
     Active Substance: HYDROCHLOROTHIAZIDE
     Dosage: 25 MG X ONCE A DAY IN THE MORNING FOR 30 DAYS
  30. GLYCERINE [Concomitant]
     Active Substance: GLYCERIN
     Dosage: 3.2 G PR
  31. PLAVIX [Concomitant]
     Active Substance: CLOPIDOGREL BISULFATE
  32. OMEPRAZOLE. [Concomitant]
     Active Substance: OMEPRAZOLE
  33. OLODATEROL HCL [Concomitant]
     Dosage: 1 ONCE A DAY IN MORNING

REACTIONS (14)
  - Dyspnoea [Recovering/Resolving]
  - Erythema [Unknown]
  - Asthenia [Unknown]
  - Abdominal distension [Not Recovered/Not Resolved]
  - Presyncope [Unknown]
  - Abdominal pain upper [Not Recovered/Not Resolved]
  - Back pain [Unknown]
  - Vertigo [Unknown]
  - Muscle spasms [Unknown]
  - Chest pain [Unknown]
  - Heart rate increased [Unknown]
  - Pneumonia [Not Recovered/Not Resolved]
  - Asthma [Unknown]
  - Pain in extremity [Unknown]

NARRATIVE: CASE EVENT DATE: 2019
